FAERS Safety Report 8781140 (Version 2)
Quarter: 2012Q4

REPORT INFORMATION
  Report Type: Report from Study
  Country: US (occurrence: US)
  Receive Date: 20120913
  Receipt Date: 20120928
  Transmission Date: 20130627
  Serious: Yes (Hospitalization)
  Sender: FDA-Public Use
  Company Number: US-009507513-1209USA002067

PATIENT

DRUGS (3)
  1. NEOSTIGMINE [Suspect]
     Indication: NEUROMUSCULAR BLOCKADE REVERSAL
     Dosage: 4 ml, Once
     Route: 042
     Dates: start: 20120828, end: 20120828
  2. GLYCOPYRROLATE [Suspect]
     Indication: NEUROMUSCULAR BLOCKADE REVERSAL
     Dosage: 4 ml, Once
     Route: 042
     Dates: start: 20120828, end: 20120828
  3. LISINOPRIL [Concomitant]
     Indication: HYPERTENSION
     Dosage: 10 mg, UNK
     Dates: start: 20120705

REACTIONS (3)
  - Pneumonia [Recovering/Resolving]
  - Wound infection [Recovering/Resolving]
  - Ileus [Recovered/Resolved]
